FAERS Safety Report 23351737 (Version 2)
Quarter: 2024Q1

REPORT INFORMATION
  Report Type: Spontaneous
  Country: US (occurrence: None)
  Receive Date: 20231229
  Receipt Date: 20240102
  Transmission Date: 20240410
  Serious: Yes (Hospitalization, Other)
  Sender: FDA-Public Use
  Company Number: 2023A291084

PATIENT
  Age: 65 Year
  Sex: Female
  Weight: 61 kg

DRUGS (25)
  1. FULVESTRANT [Suspect]
     Active Substance: FULVESTRANT
     Route: 030
     Dates: start: 20221018
  2. BENZONATATE [Concomitant]
     Active Substance: BENZONATATE
     Dates: start: 20220924
  3. BUDESONIDE [Concomitant]
     Active Substance: BUDESONIDE
     Dates: start: 20221130
  4. CARVEDILOL [Concomitant]
     Active Substance: CARVEDILOL
     Dates: start: 20220709
  5. CETIRIZINE [Concomitant]
     Active Substance: CETIRIZINE HYDROCHLORIDE
     Dates: start: 20220907
  6. CODEINE [Concomitant]
     Active Substance: CODEINE
     Dates: start: 20221116
  7. COLCHICINE [Concomitant]
     Active Substance: COLCHICINE
     Dates: start: 20230217
  8. DOCUSATE SODIUM [Concomitant]
     Active Substance: DOCUSATE SODIUM
     Dates: start: 20220808
  9. FENTANYL [Concomitant]
     Active Substance: FENTANYL\FENTANYL CITRATE
     Dates: start: 20221116
  10. GABAPENTIN [Concomitant]
     Active Substance: GABAPENTIN
     Dates: start: 20220920
  11. GUAIFENESIN [Concomitant]
     Active Substance: GUAIFENESIN
     Dates: start: 20220916
  12. LORAZEPAM [Concomitant]
     Active Substance: LORAZEPAM
     Dates: start: 20220920
  13. LORAZEPAM [Concomitant]
     Active Substance: LORAZEPAM
     Dates: start: 20220916
  14. LIDOCAINE [Concomitant]
     Active Substance: LIDOCAINE
     Dates: start: 20230112
  15. LOSARTAN POTASSIUM [Concomitant]
     Active Substance: LOSARTAN POTASSIUM
     Dates: start: 20220907
  16. POLYETHYLENE GLYCOL 3350 [Concomitant]
     Active Substance: POLYETHYLENE GLYCOL 3350
     Dates: start: 20220907
  17. NITROFURANTOIN [Concomitant]
     Active Substance: NITROFURANTOIN
     Dates: start: 20230504, end: 20230510
  18. ONDANSETRON [Concomitant]
     Active Substance: ONDANSETRON
     Dates: start: 20220907
  19. OXYCODONE [Concomitant]
     Active Substance: OXYCODONE
     Dates: start: 20221007
  20. PANTOPRAZOLE [Concomitant]
     Active Substance: PANTOPRAZOLE
     Dates: start: 20220916
  21. RISPERIDONE [Concomitant]
     Active Substance: RISPERIDONE
     Dates: start: 20220923
  22. SENNA LEAF [Concomitant]
     Active Substance: SENNA LEAF
     Dates: start: 20220808
  23. SERTRALINE [Concomitant]
     Active Substance: SERTRALINE HYDROCHLORIDE
     Dates: start: 20220920
  24. VITAMIN E [Concomitant]
     Active Substance: .ALPHA.-TOCOPHEROL
     Dates: start: 20220323
  25. AZITHROMYCIN [Concomitant]
     Active Substance: AZITHROMYCIN
     Dates: start: 20221130

REACTIONS (2)
  - Metastases to liver [Unknown]
  - Pyelonephritis [Recovered/Resolved]

NARRATIVE: CASE EVENT DATE: 20230511
